FAERS Safety Report 16644059 (Version 1)
Quarter: 2019Q3

REPORT INFORMATION
  Report Type: Spontaneous
  Country: US (occurrence: US)
  Receive Date: 20190729
  Receipt Date: 20190729
  Transmission Date: 20191004
  Serious: No
  Sender: FDA-Public Use
  Company Number: US-JNJFOC-20190734831

PATIENT
  Age: 7 Year
  Sex: Male
  Weight: 25 kg

DRUGS (1)
  1. CONCERTA [Suspect]
     Active Substance: METHYLPHENIDATE HYDROCHLORIDE
     Indication: ATTENTION DEFICIT/HYPERACTIVITY DISORDER
     Dosage: STRENGTH:18MG
     Route: 048
     Dates: start: 20190717

REACTIONS (11)
  - Pallor [Recovered/Resolved]
  - Crying [Not Recovered/Not Resolved]
  - Dyspnoea [Not Recovered/Not Resolved]
  - Vomiting [Recovered/Resolved]
  - Speech disorder [Not Recovered/Not Resolved]
  - Dysphemia [Not Recovered/Not Resolved]
  - Heart rate decreased [Not Recovered/Not Resolved]
  - Incoherent [Not Recovered/Not Resolved]
  - Poor quality sleep [Recovered/Resolved]
  - Confusional state [Not Recovered/Not Resolved]
  - Eating disorder symptom [Not Recovered/Not Resolved]

NARRATIVE: CASE EVENT DATE: 20190717
